FAERS Safety Report 4822619-6 (Version None)
Quarter: 2005Q4

REPORT INFORMATION
  Report Type: 
  Country: None (occurrence: None)
  Receive Date: 20051108
  Receipt Date: 20051006
  Transmission Date: 20060501
  Serious: Yes (Life-Threatening, Hospitalization, Other)
  Sender: FDA-Public Use
  Company Number: PHFR2005GB03308

PATIENT
  Age: 14 Year
  Sex: Female
  Weight: 40 kg

DRUGS (3)
  1. METFORMIN (NGX) [Suspect]
     Indication: INCORRECT DOSE ADMINISTERED
     Dosage: 63 G, ONCE/SINGLE
     Route: 048
  2. ATENOLOL [Suspect]
     Indication: INCORRECT DOSE ADMINISTERED
     Dosage: 1400 MG, ONCE/SINGLE
     Route: 048
  3. DICLOFENAC [Suspect]
     Indication: INCORRECT DOSE ADMINISTERED
     Dosage: 1050 MG, ONCE/SINGLE
     Route: 048

REACTIONS (9)
  - BLOOD ALBUMIN INCREASED [None]
  - BLOOD BICARBONATE DECREASED [None]
  - BRADYCARDIA [None]
  - CONVULSION [None]
  - GLASGOW COMA SCALE ABNORMAL [None]
  - HYPOGLYCAEMIA [None]
  - HYPOTENSION [None]
  - INTENTIONAL DRUG MISUSE [None]
  - LACTIC ACIDOSIS [None]
